FAERS Safety Report 5312289-5 (Version None)
Quarter: 2007Q2

REPORT INFORMATION
  Report Type: 
  Country: None (occurrence: None)
  Receive Date: 20070430
  Receipt Date: 20061103
  Transmission Date: 20071010
  Serious: No
  Sender: FDA-Public Use
  Company Number: 2006UW21652

PATIENT
  Age: 56 Year
  Sex: Female
  Weight: 77.1 kg

DRUGS (8)
  1. NEXIUM [Suspect]
     Route: 048
  2. SYNTHROID [Concomitant]
  3. LIMBREL [Concomitant]
  4. DECONSAL II [Concomitant]
  5. VITAMINS [Concomitant]
  6. FISH OIL [Concomitant]
  7. MAGNESIUM SULFATE [Concomitant]
  8. CALCIUM CHLORIDE [Concomitant]

REACTIONS (2)
  - ABDOMINAL PAIN [None]
  - DYSPHONIA [None]
